FAERS Safety Report 6676454-7 (Version None)
Quarter: 2010Q2

REPORT INFORMATION
  Report Type: 
  Country: None (occurrence: None)
  Receive Date: 20100412
  Receipt Date: 20100402
  Transmission Date: 20101027
  Serious: Yes (Other)
  Sender: FDA-Public Use
  Company Number: PHHY2010US18111

PATIENT
  Sex: Male

DRUGS (6)
  1. EXJADE [Suspect]
     Dosage: 625 MG DAILY
     Route: 048
     Dates: start: 20080825, end: 20100223
  2. FLOVENT [Concomitant]
     Dosage: 2 PUFFS
     Dates: start: 20100214
  3. PENICILLIN G [Concomitant]
     Dosage: 50 ML, BID
     Route: 048
     Dates: start: 20090218
  4. HYDROXYUREA [Concomitant]
     Dosage: UNK
     Route: 048
     Dates: start: 20090821, end: 20100330
  5. ASPIRIN [Concomitant]
     Dosage: 81 MG, UNK
     Route: 048
     Dates: start: 20090226
  6. PEDIASURE [Concomitant]
     Dosage: 1 CAN 3 TIMES DAILY
     Route: 048
     Dates: start: 20090917

REACTIONS (2)
  - HEPATIC ENZYME INCREASED [None]
  - TRANSPLANT [None]
